FAERS Safety Report 7607725-5 (Version None)
Quarter: 2011Q3

REPORT INFORMATION
  Report Type: 
  Country: None (occurrence: None)
  Receive Date: 20110713
  Receipt Date: 20110525
  Transmission Date: 20111222
  Serious: Yes (Other)
  Sender: FDA-Public Use
  Company Number: PHHY2011US45220

PATIENT
  Sex: Female

DRUGS (9)
  1. DIOVAN [Suspect]
     Dosage: 0.5 DF, UNK
  2. BUSPIRON [Concomitant]
  3. FISH OIL [Concomitant]
  4. VITAMIN TAB [Concomitant]
  5. CALCIUM CARBONATE [Concomitant]
  6. GLYBURIDE [Concomitant]
  7. PAIN RELIVERS [Concomitant]
  8. VITAMIN B-12 [Concomitant]
  9. DIOVAN [Suspect]
     Dosage: 80 MG, QD

REACTIONS (5)
  - ABDOMINAL PAIN [None]
  - DIZZINESS [None]
  - HEADACHE [None]
  - WRONG TECHNIQUE IN DRUG USAGE PROCESS [None]
  - FUNGAL INFECTION [None]
